FAERS Safety Report 25486574 (Version 2)
Quarter: 2025Q3

REPORT INFORMATION
  Report Type: Spontaneous
  Country: EU (occurrence: EU)
  Receive Date: 20250627
  Receipt Date: 20250724
  Transmission Date: 20251021
  Serious: Yes (Hospitalization)
  Sender: ROCHE
  Company Number: EU-ROCHE-10000321464

PATIENT
  Age: 17 Month
  Sex: Male
  Weight: 12 kg

DRUGS (3)
  1. RISDIPLAM [Suspect]
     Active Substance: RISDIPLAM
     Indication: Spinal muscular atrophy
     Dosage: DOSE: 0.75 MG/ML
     Route: 048
     Dates: start: 20230719
  2. Nebulised salbutamol [Concomitant]
     Route: 055
  3. METHYLPREDNISOLONE [Concomitant]
     Active Substance: METHYLPREDNISOLONE
     Route: 042

REACTIONS (3)
  - Lower respiratory tract infection [Recovered/Resolved]
  - Respiratory failure [Recovered/Resolved]
  - Pneumothorax [Recovered/Resolved]

NARRATIVE: CASE EVENT DATE: 20240208
